FAERS Safety Report 18959577 (Version 11)
Quarter: 2021Q3

REPORT INFORMATION
  Report Type: Spontaneous
  Country: SK (occurrence: GB)
  Receive Date: 20210302
  Receipt Date: 20210702
  Transmission Date: 20211014
  Serious: Yes (Death, Other)
  Sender: FDA-Public Use
  Company Number: SK-PFIZER INC-2021208765

PATIENT
  Sex: Female

DRUGS (5)
  1. CIPROFLOXACIN. [Suspect]
     Active Substance: CIPROFLOXACIN
     Dosage: UNK
  2. SALAMOL [SALBUTAMOL SULFATE] [Suspect]
     Active Substance: ALBUTEROL SULFATE
     Dosage: 100 UG
     Route: 055
  3. ENOXAPARIN [Suspect]
     Active Substance: ENOXAPARIN
     Dosage: UNK
  4. SEREVENT DISKUS [Suspect]
     Active Substance: SALMETEROL XINAFOATE
     Dosage: 2 DF (2 PUFFS) (AEROSOL INHALATION), 25 MCG (DRY POWDER INHALER DEVICE INHALER)
     Route: 055
  5. ONDANSETRON HCL [Suspect]
     Active Substance: ONDANSETRON HYDROCHLORIDE
     Dosage: UNK

REACTIONS (2)
  - Dysphonia [Not Recovered/Not Resolved]
  - Death [Fatal]
